FAERS Safety Report 6237239-9 (Version None)
Quarter: 2009Q2

REPORT INFORMATION
  Report Type: 
  Country: None (occurrence: None)
  Receive Date: 20090619
  Receipt Date: 20090221
  Transmission Date: 20091009
  Serious: No
  Sender: FDA-Public Use
  Company Number: US-BAYER-200910514BCC

PATIENT
  Age: 41 Year
  Sex: Female
  Weight: 49 kg

DRUGS (1)
  1. ALEVE [Suspect]
     Dosage: UNIT DOSE: 220 MG
     Dates: start: 20090215

REACTIONS (4)
  - FACIAL PAIN [None]
  - HYPOAESTHESIA FACIAL [None]
  - SWELLING FACE [None]
  - TRISMUS [None]
